FAERS Safety Report 14708080 (Version 3)
Quarter: 2020Q3

REPORT INFORMATION
  Report Type: Spontaneous
  Country: US (occurrence: US)
  Receive Date: 20180403
  Receipt Date: 20200807
  Transmission Date: 20201102
  Serious: Yes (Other)
  Sender: FDA-Public Use
  Company Number: US-PFIZER INC-2018132220

PATIENT
  Age: 55 Year
  Sex: Female

DRUGS (2)
  1. XELJANZ [Suspect]
     Active Substance: TOFACITINIB CITRATE
     Dosage: UNK
     Route: 048
  2. PROPRANOLOL [Concomitant]
     Active Substance: PROPRANOLOL HYDROCHLORIDE
     Indication: SOCIAL ANXIETY DISORDER
     Dosage: 10 MG, AS NEEDED ([TAKE 1 TABLET BY MOUTH 3 TIMES DAILY AS NEEDED])
     Route: 048

REACTIONS (2)
  - Drug hypersensitivity [Unknown]
  - Renal failure [Unknown]
